FAERS Safety Report 9638482 (Version 3)
Quarter: 2013Q4

REPORT INFORMATION
  Report Type: Spontaneous
  Country: JP (occurrence: JP)
  Receive Date: 20131022
  Receipt Date: 20131121
  Transmission Date: 20140711
  Serious: Yes (Other)
  Sender: FDA-Public Use
  Company Number: JP-B.I. PHARMACEUTICALS,INC./RIDGEFIELD-2013-BI-33603GD

PATIENT
  Age: 64 Year
  Sex: Male

DRUGS (4)
  1. PRADAXA [Suspect]
     Indication: ATRIAL FIBRILLATION
     Dosage: 220 MG
     Route: 048
  2. HEPARIN [Suspect]
  3. ASPIRIN [Suspect]
     Dosage: 100 MG
  4. WARFARIN [Suspect]
     Dosage: 3 MG

REACTIONS (3)
  - Embolic stroke [Unknown]
  - Atrial thrombosis [Recovered/Resolved]
  - Altered state of consciousness [Unknown]
